FAERS Safety Report 5166542-9 (Version None)
Quarter: 2006Q4

REPORT INFORMATION
  Report Type: 
  Country: None (occurrence: None)
  Receive Date: 20061129
  Receipt Date: 20061114
  Transmission Date: 20070319
  Serious: Yes (Hospitalization)
  Sender: FDA-Public Use
  Company Number: 230009M06AUS

PATIENT
  Age: 71 Year
  Sex: Male

DRUGS (10)
  1. REBIF [Suspect]
     Indication: RELAPSING-REMITTING MULTIPLE SCLEROSIS
     Dosage: 44 MCG, 3 IN 1 WEEKS, SUBCUTANEOUS
     Route: 058
     Dates: start: 20060410
  2. LISINOPRIL [Concomitant]
  3. TIOTROPIUM BROMIDE [Concomitant]
  4. GLICLAZIDE [Concomitant]
  5. METFORMIN HCL [Concomitant]
  6. CITALOPRAM HYDROBROMIDE [Concomitant]
  7. POTASSIUM CHLORIDE [Concomitant]
  8. RANITIDINE [Concomitant]
  9. BUDESONIDE W/FORMOTEROL FUMARATE [Concomitant]
  10. METOCLOPRAMIDE [Concomitant]

REACTIONS (6)
  - DRUG INEFFECTIVE [None]
  - FALL [None]
  - MULTIPLE SCLEROSIS RELAPSE [None]
  - SECONDARY PROGRESSIVE MULTIPLE SCLEROSIS [None]
  - SYNCOPE [None]
  - URINARY TRACT INFECTION [None]
